FAERS Safety Report 6127265-2 (Version None)
Quarter: 2009Q1

REPORT INFORMATION
  Report Type: 
  Country: None (occurrence: None)
  Receive Date: 20090319
  Receipt Date: 20090305
  Transmission Date: 20090719
  Serious: Yes (Hospitalization)
  Sender: FDA-Public Use
  Company Number: 02100-JPN-07-0607

PATIENT
  Age: 63 Year
  Sex: Male

DRUGS (8)
  1. PLAVIX [Suspect]
     Indication: CEREBRAL INFARCTION
     Dosage: 75 MG, DAILY DOSE, ORAL
     Route: 048
     Dates: start: 20070221, end: 20070919
  2. ASPIRIN [Concomitant]
  3. FAMOTIDINE (FAMOTIDINE) TABLET [Concomitant]
  4. GLIMEPIRIDE [Concomitant]
  5. MAGNESIUM OXIDE (MAGNESIUM OXIDE) [Concomitant]
  6. HYDROCHLOROTHIAZIDE [Concomitant]
  7. BARNIDIPINE HYDROCHLORIDE (BARNIDIPINE HYDROCHLORIDE) [Concomitant]
  8. CANDESARTAN CILEXETIL [Concomitant]

REACTIONS (2)
  - CEREBRAL ARTERIOSCLEROSIS [None]
  - CEREBRAL INFARCTION [None]
